FAERS Safety Report 15803132 (Version 7)
Quarter: 2019Q4

REPORT INFORMATION
  Report Type: Spontaneous
  Country: US (occurrence: US)
  Receive Date: 20190109
  Receipt Date: 20191209
  Transmission Date: 20200122
  Serious: Yes (Other)
  Sender: FDA-Public Use
  Company Number: US-PFIZER INC-2019009738

PATIENT
  Age: 74 Year
  Sex: Female
  Weight: 111 kg

DRUGS (22)
  1. GLIMEPIRID [Concomitant]
     Active Substance: GLIMEPIRIDE
     Dosage: UNK
  2. PREDNISONE. [Concomitant]
     Active Substance: PREDNISONE
     Dosage: 2.5 MG, UNK
  3. NYSTIN [Concomitant]
     Dosage: UNK
  4. IBRANCE [Suspect]
     Active Substance: PALBOCICLIB
     Indication: BREAST CANCER STAGE IV
     Dosage: 100 MG, 1X/DAY
     Route: 048
     Dates: start: 201812, end: 201812
  5. METFORMIN [Concomitant]
     Active Substance: METFORMIN HYDROCHLORIDE
     Dosage: UNK
  6. GLUCOSAMINE [Concomitant]
     Active Substance: GLUCOSAMINE
     Dosage: UNK
  7. IBUPROFEN. [Concomitant]
     Active Substance: IBUPROFEN
     Dosage: UNK
  8. ATORVASTATIN CALCIUM. [Concomitant]
     Active Substance: ATORVASTATIN CALCIUM
     Dosage: UNK
  9. ANASTROZOLE. [Concomitant]
     Active Substance: ANASTROZOLE
  10. ASPRIN [Concomitant]
     Active Substance: ASPIRIN
     Dosage: UNK
  11. BREO ELLIPTA [Concomitant]
     Active Substance: FLUTICASONE FUROATE\VILANTEROL TRIFENATATE
     Dosage: UNK
  12. CALCIUM CITRATE [Concomitant]
     Active Substance: CALCIUM CITRATE
     Dosage: UNK
  13. VENTORLIN [SALBUTAMOL] [Concomitant]
     Dosage: UNK
  14. EQUATE NASAL [Concomitant]
     Active Substance: OXYMETAZOLINE HYDROCHLORIDE\PHENYLEPHRINE HYDROCHLORIDE
     Dosage: UNK
  15. POTASSIUM [Concomitant]
     Active Substance: POTASSIUM
     Dosage: UNK
  16. IBRANCE [Suspect]
     Active Substance: PALBOCICLIB
     Dosage: 100 MG, UNK (TAKE ON MON, WED, FRIDAY, SUN)
  17. FUROSEMIDE. [Concomitant]
     Active Substance: FUROSEMIDE
     Dosage: UNK
  18. SPIRIVA [Concomitant]
     Active Substance: TIOTROPIUM BROMIDE MONOHYDRATE
     Dosage: UNK
  19. VENTOLIN [Concomitant]
     Active Substance: ALBUTEROL SULFATE
     Dosage: UNK
  20. IPRATROPIUM [Concomitant]
     Active Substance: IPRATROPIUM
     Dosage: UNK
  21. HYOSIN [Concomitant]
     Dosage: UNK
  22. TYLENOL [Concomitant]
     Active Substance: ACETAMINOPHEN

REACTIONS (6)
  - Oropharyngeal blistering [Recovered/Resolved]
  - Malaise [Recovered/Resolved]
  - Tongue blistering [Recovered/Resolved]
  - Oral mucosal blistering [Recovered/Resolved]
  - Candida infection [Recovered/Resolved]
  - Respiratory tract congestion [Recovered/Resolved]

NARRATIVE: CASE EVENT DATE: 2018
